FAERS Safety Report 9653209 (Version 2)
Quarter: 2014Q1

REPORT INFORMATION
  Report Type: Spontaneous
  Country: GB (occurrence: GB)
  Receive Date: 20131029
  Receipt Date: 20140107
  Transmission Date: 20141002
  Serious: Yes (Other)
  Sender: FDA-Public Use
  Company Number: GB-GLAXOSMITHKLINE-B0933820A

PATIENT
  Age: 57 Year
  Sex: Female
  Weight: 60 kg

DRUGS (1)
  1. LAMICTAL [Suspect]
     Route: 048
     Dates: start: 20130915, end: 20130922

REACTIONS (4)
  - Aura [Recovered/Resolved]
  - Altered state of consciousness [Recovered/Resolved]
  - Product substitution issue [Unknown]
  - Epilepsy [Recovered/Resolved]
